FAERS Safety Report 7328812-5 (Version None)
Quarter: 2011Q1

REPORT INFORMATION
  Report Type: 
  Country: None (occurrence: None)
  Receive Date: 20110225
  Receipt Date: 20110225
  Transmission Date: 20110831
  Serious: Yes (Life-Threatening)
  Sender: FDA-Public Use
  Company Number: None

PATIENT
  Age: 38 Year
  Sex: Male
  Weight: 113.3993 kg

DRUGS (1)
  1. NUVIGIL [Suspect]
     Indication: SLEEP DISORDER
     Dosage: 1 DAILY PO
     Route: 048
     Dates: start: 20110122, end: 20110217

REACTIONS (5)
  - COORDINATION ABNORMAL [None]
  - HEADACHE [None]
  - ANXIETY [None]
  - DISORIENTATION [None]
  - CHEST PAIN [None]
